FAERS Safety Report 15362110 (Version 2)
Quarter: 2018Q3

REPORT INFORMATION
  Report Type: Spontaneous
  Country: US (occurrence: US)
  Receive Date: 20180907
  Receipt Date: 20180925
  Transmission Date: 20181010
  Serious: Yes (Hospitalization)
  Sender: FDA-Public Use
  Company Number: US-BAUSCH-BL-2018-024207

PATIENT
  Age: 11 Year
  Sex: Male
  Weight: 40.86 kg

DRUGS (3)
  1. DIASTAT [Suspect]
     Active Substance: DIAZEPAM
     Dosage: USED ONLY ONCE
     Route: 065
     Dates: start: 20180823, end: 20180823
  2. DIASTAT [Suspect]
     Active Substance: DIAZEPAM
     Indication: SEIZURE
     Dosage: STARTED THE SUSPECT DRUG THERAPY WHEN HE WAS 3 YEARS OLD
     Route: 065
  3. DIASTAT [Suspect]
     Active Substance: DIAZEPAM
     Route: 065
     Dates: start: 2018

REACTIONS (3)
  - Drug effect incomplete [Unknown]
  - No adverse event [Unknown]
  - Expired product administered [Recovered/Resolved]

NARRATIVE: CASE EVENT DATE: 201808
